FAERS Safety Report 7865897-1 (Version None)
Quarter: 2011Q4

REPORT INFORMATION
  Report Type: 
  Country: None (occurrence: None)
  Receive Date: 20111028
  Receipt Date: 20110317
  Transmission Date: 20120403
  Serious: No
  Sender: FDA-Public Use
  Company Number: US-GLAXOSMITHKLINE-A0918673A

PATIENT
  Age: 64 Year
  Sex: Male

DRUGS (11)
  1. QVAR 40 [Concomitant]
  2. JALYN [Concomitant]
  3. ADVAIR DISKUS 100/50 [Suspect]
     Indication: ASTHMA
     Dosage: 1PUFF TWICE PER DAY
     Route: 055
     Dates: start: 20080101
  4. INDERAL [Concomitant]
  5. ALLOPURINOL [Concomitant]
  6. LISINOPRIL [Concomitant]
  7. PROTONIX [Concomitant]
  8. ASTEPRO [Concomitant]
  9. AXID [Concomitant]
  10. PROVENTIL-HFA [Concomitant]
  11. VALIUM [Concomitant]

REACTIONS (3)
  - COUGH [None]
  - PRODUCT QUALITY ISSUE [None]
  - ILL-DEFINED DISORDER [None]
